FAERS Safety Report 17347939 (Version 1)
Quarter: 2020Q1

REPORT INFORMATION
  Report Type: Report from Study
  Country: US (occurrence: US)
  Receive Date: 20200129
  Receipt Date: 20200129
  Transmission Date: 20200409
  Serious: No
  Sender: FDA-Public Use
  Company Number: US-EXELIXIS-CABO-19025497

PATIENT
  Sex: Female

DRUGS (3)
  1. CABOMETYX [Suspect]
     Active Substance: CABOZANTINIB S-MALATE
     Indication: METASTASES TO SPINE
     Dosage: 20 MG, QD( 8AM NO FOOD 2 HRS PRIOR AND 1 HR AFTER )
     Dates: start: 20191203
  2. CABOMETYX [Suspect]
     Active Substance: CABOZANTINIB S-MALATE
     Indication: METASTASES TO CENTRAL NERVOUS SYSTEM
     Dosage: 20 MG, QD (8AM, WITHOUT FOOD, 2HRS PRIOR AND 1 HR AFTER)
     Dates: start: 20191104, end: 20191125
  3. CABOMETYX [Suspect]
     Active Substance: CABOZANTINIB S-MALATE
     Indication: RENAL CANCER
     Dosage: 40 MG
     Dates: start: 201811

REACTIONS (2)
  - Jaw disorder [Recovered/Resolved]
  - Tongue disorder [Recovering/Resolving]
